FAERS Safety Report 14491043 (Version 3)
Quarter: 2024Q2

REPORT INFORMATION
  Report Type: Spontaneous
  Country: ES (occurrence: ES)
  Receive Date: 20180206
  Receipt Date: 20240618
  Transmission Date: 20240716
  Serious: Yes (Other)
  Sender: FDA-Public Use
  Company Number: ES-AUROBINDO-AUR-APL-2018-004747

PATIENT
  Age: 92 Year
  Sex: Female

DRUGS (8)
  1. AMOXICILLIN\CLAVULANIC ACID [Suspect]
     Active Substance: AMOXICILLIN\CLAVULANIC ACID
     Indication: Pneumonia
     Dosage: 1 GRAM, 3 TIMES A DAY (1 G EVERY 8 HOURS WITH A SUBSEQUENT DOSE REDUCTION TO 875 G EVERY 8 HOURS ON
     Route: 042
     Dates: start: 20170125, end: 20170208
  2. PANTOPRAZOLE [Suspect]
     Active Substance: PANTOPRAZOLE
     Indication: Product used for unknown indication
     Dosage: 20 MILLIGRAM, DAILY
     Route: 065
     Dates: start: 20170125
  3. ACENOCOUMAROL [Suspect]
     Active Substance: ACENOCOUMAROL
     Indication: Atrial fibrillation
     Dosage: 3 MILLIGRAM (0.25 MG EVERY 24 HOURS WITH SUBSEQUENT INCREASE TO 0.5 MG EVERY 24 HOURS ON 01/26/2017)
     Route: 048
     Dates: start: 20040917, end: 20170127
  4. ACENOCOUMAROL [Suspect]
     Active Substance: ACENOCOUMAROL
     Dosage: UNK
     Route: 048
     Dates: start: 20170125, end: 20170127
  5. LORAZEPAM [Concomitant]
     Active Substance: LORAZEPAM
     Indication: Product used for unknown indication
     Dosage: 0.5 MG EVERY 24 HOURS WITH INCREASE ON 01/26/2017 TO 1 MG EVERY 24 HOURS ()
     Route: 065
     Dates: start: 20170126
  6. ACETAMINOPHEN [Concomitant]
     Active Substance: ACETAMINOPHEN
     Indication: Product used for unknown indication
     Dosage: 1 GRAM, 3 TIMES A DAY (1 GR EVERY 8 HOURS)
     Route: 065
     Dates: start: 20170125
  7. AMBROXOL [Concomitant]
     Active Substance: AMBROXOL
     Indication: Product used for unknown indication
     Dosage: 15 MG CADA 8 HORAS ()
     Route: 065
     Dates: start: 20170125
  8. DIGOXIN [Concomitant]
     Active Substance: DIGOXIN
     Indication: Product used for unknown indication
     Dosage: 0.125 MILLIGRAM, DAILY
     Route: 065
     Dates: start: 20170126

REACTIONS (1)
  - Hypocoagulable state [Recovered/Resolved]

NARRATIVE: CASE EVENT DATE: 20170127
